FAERS Safety Report 6023819-2 (Version None)
Quarter: 2008Q4

REPORT INFORMATION
  Report Type: 
  Country: None (occurrence: None)
  Receive Date: 20081230
  Receipt Date: 20081216
  Transmission Date: 20090506
  Serious: Yes (Other)
  Sender: FDA-Public Use
  Company Number: US-PFIZER INC-2008098752

PATIENT
  Age: 29 Year
  Sex: Female
  Weight: 96.8 kg

DRUGS (3)
  1. CHANTIX [Suspect]
     Indication: SMOKING CESSATION THERAPY
     Route: 048
     Dates: start: 20080513, end: 20081030
  2. DEPO-PROVERA [Concomitant]
  3. VICODIN [Concomitant]

REACTIONS (7)
  - ANGER [None]
  - DEPRESSION [None]
  - DISCOMFORT [None]
  - EMOTIONAL DISORDER [None]
  - INSOMNIA [None]
  - IRRITABILITY [None]
  - MOOD ALTERED [None]
